FAERS Safety Report 16083626 (Version 1)
Quarter: 2019Q1

REPORT INFORMATION
  Report Type: Report from Study
  Country: US (occurrence: US)
  Receive Date: 20190318
  Receipt Date: 20190318
  Transmission Date: 20190418
  Serious: Yes (Other)
  Sender: FDA-Public Use
  Company Number: US-ROCHE-2278665

PATIENT
  Age: 53 Year
  Sex: Female
  Weight: 60.38 kg

DRUGS (2)
  1. OCREVUS [Suspect]
     Active Substance: OCRELIZUMAB
     Indication: RELAPSING-REMITTING MULTIPLE SCLEROSIS
     Route: 065
     Dates: start: 20180807
  2. AMPYRA [Concomitant]
     Active Substance: DALFAMPRIDINE
     Route: 065

REACTIONS (15)
  - Swelling [Recovered/Resolved]
  - Pain [Recovered/Resolved]
  - Eructation [Recovered/Resolved]
  - Cellulitis [Recovered/Resolved]
  - Flushing [Recovered/Resolved]
  - Headache [Recovered/Resolved]
  - Fatigue [Recovered/Resolved]
  - Nausea [Recovered/Resolved]
  - Band sensation [Recovered/Resolved]
  - Dyspnoea [Recovered/Resolved]
  - Breast discomfort [Recovering/Resolving]
  - Influenza like illness [Recovered/Resolved]
  - Muscle twitching [Recovered/Resolved]
  - Discomfort [Recovered/Resolved]
  - Breast pain [Recovering/Resolving]

NARRATIVE: CASE EVENT DATE: 20180807
